FAERS Safety Report 4294574-1 (Version None)
Quarter: 2004Q1

REPORT INFORMATION
  Report Type: 
  Country: None (occurrence: None)
  Receive Date: 20040211
  Receipt Date: 20040128
  Transmission Date: 20041129
  Serious: Yes (Death)
  Sender: FDA-Public Use
  Company Number: 2004AP00289

PATIENT
  Age: 57 Year
  Sex: Male

DRUGS (2)
  1. XYLOCAINE VISCOUS [Suspect]
     Indication: LOCAL ANAESTHESIA
     Dosage: 100 MG DAILY PO
     Route: 048
     Dates: start: 20040117, end: 20040117
  2. GASCON [Concomitant]

REACTIONS (1)
  - ANAPHYLACTIC SHOCK [None]
